FAERS Safety Report 7126488-3 (Version None)
Quarter: 2010Q4

REPORT INFORMATION
  Report Type: 
  Country: None (occurrence: None)
  Receive Date: 20101129
  Receipt Date: 20101115
  Transmission Date: 20110411
  Serious: Yes (Hospitalization, Other)
  Sender: FDA-Public Use
  Company Number: DE-ASTRAZENECA-2010SE52512

PATIENT
  Age: 27993 Day
  Sex: Male
  Weight: 68 kg

DRUGS (2)
  1. CASODEX [Suspect]
     Indication: PROSTATE CANCER
     Route: 048
     Dates: start: 20090812, end: 20101021
  2. TRENANTONE [Concomitant]
     Indication: PROSTATE CANCER
     Dosage: EVERY THREE MONTHS
     Route: 058
     Dates: start: 20090812

REACTIONS (4)
  - BUNDLE BRANCH BLOCK LEFT [None]
  - BUNDLE BRANCH BLOCK RIGHT [None]
  - COLONIC POLYP [None]
  - DIARRHOEA [None]
